FAERS Safety Report 11694514 (Version 2)
Quarter: 2015Q4

REPORT INFORMATION
  Report Type: Spontaneous
  Country: US (occurrence: US)
  Receive Date: 20151103
  Receipt Date: 20151106
  Transmission Date: 20160304
  Serious: Yes (Other)
  Sender: FDA-Public Use
  Company Number: US-SA-2015SA172333

PATIENT
  Age: 84 Year
  Sex: Male

DRUGS (5)
  1. SOLOSTAR [Suspect]
     Active Substance: DEVICE
     Indication: TYPE 2 DIABETES MELLITUS
     Dosage: 80-84 UNITS AT NIGHT
     Dates: start: 2014
  2. LANTUS SOLOSTAR [Suspect]
     Active Substance: INSULIN GLARGINE
     Indication: TYPE 2 DIABETES MELLITUS
     Dosage: DOSE 80-84 UNITS
     Route: 065
     Dates: start: 2014
  3. NOVOLOG [Concomitant]
     Active Substance: INSULIN ASPART
  4. LANTUS SOLOSTAR [Suspect]
     Active Substance: INSULIN GLARGINE
     Indication: TYPE 2 DIABETES MELLITUS
     Dosage: DOSE 80-84 UNITS
     Route: 065
     Dates: start: 2014
  5. SOLOSTAR [Suspect]
     Active Substance: DEVICE
     Indication: TYPE 2 DIABETES MELLITUS
     Dosage: 80-84 UNITS AT NIGHT
     Dates: start: 2014

REACTIONS (3)
  - Hearing impaired [Unknown]
  - Wrong technique in product usage process [Unknown]
  - Blood glucose increased [Unknown]

NARRATIVE: CASE EVENT DATE: 20151024
